FAERS Safety Report 16398428 (Version 1)
Quarter: 2019Q2

REPORT INFORMATION
  Report Type: Report from Study
  Country: US (occurrence: US)
  Receive Date: 20190606
  Receipt Date: 20190606
  Transmission Date: 20190711
  Serious: Yes (Other)
  Sender: FDA-Public Use
  Company Number: US-VELOXIS PHARMACEUTICALS, INC.-2019VELUS1544

PATIENT
  Age: 61 Year
  Sex: Male
  Weight: 78.8 kg

DRUGS (2)
  1. STEROIDS [Suspect]
     Active Substance: UNSPECIFIED INGREDIENT
     Indication: TRANSPLANT REJECTION
  2. ENVARSUS XR [Suspect]
     Active Substance: TACROLIMUS
     Indication: LIVER TRANSPLANT
     Dosage: 5 MG, QD
     Route: 048
     Dates: start: 20190516

REACTIONS (3)
  - Wound infection staphylococcal [Unknown]
  - Liver transplant rejection [Recovered/Resolved]
  - Abdominal wound dehiscence [Unknown]

NARRATIVE: CASE EVENT DATE: 20190520
